FAERS Safety Report 16116075 (Version 1)
Quarter: 2019Q1

REPORT INFORMATION
  Report Type: Spontaneous
  Country: CN (occurrence: CN)
  Receive Date: 20190326
  Receipt Date: 20190326
  Transmission Date: 20190418
  Serious: Yes (Other)
  Sender: FDA-Public Use
  Company Number: CN-ROCHE-2283951

PATIENT
  Age: 34 Year
  Sex: Female

DRUGS (34)
  1. HERCEPTIN [Suspect]
     Active Substance: TRASTUZUMAB
     Dosage: 6 CYCLES
     Route: 065
     Dates: start: 201007, end: 201108
  2. EPIRUBICIN [Concomitant]
     Active Substance: EPIRUBICIN
     Indication: BREAST CANCER
     Dosage: 6 CYCLES
     Route: 065
  3. GEMCITABINE [Concomitant]
     Active Substance: GEMCITABINE\GEMCITABINE HYDROCHLORIDE
     Dosage: 4 CYCLES
     Route: 065
     Dates: start: 20160620, end: 20160905
  4. VINORELBINE [Concomitant]
     Active Substance: VINORELBINE\VINORELBINE TARTRATE
     Indication: BREAST CANCER
     Dosage: 8 CYCLES
     Route: 065
     Dates: start: 20120615, end: 20130627
  5. HERCEPTIN [Suspect]
     Active Substance: TRASTUZUMAB
     Route: 065
     Dates: start: 201610
  6. CYCLOPHOSPHAMIDE. [Concomitant]
     Active Substance: CYCLOPHOSPHAMIDE
     Indication: BREAST CANCER
     Dosage: 6 CYCLES
     Route: 065
  7. EXEMESTANE. [Concomitant]
     Active Substance: EXEMESTANE
     Indication: BREAST CANCER
     Route: 065
     Dates: start: 201011, end: 201108
  8. LAPATINIB [Concomitant]
     Active Substance: LAPATINIB
     Dosage: 4 CYCLES
     Route: 065
     Dates: start: 20160620, end: 20160905
  9. HERCEPTIN [Suspect]
     Active Substance: TRASTUZUMAB
     Dosage: 8 CYCLES
     Route: 065
     Dates: start: 20120615, end: 20130627
  10. HERCEPTIN [Suspect]
     Active Substance: TRASTUZUMAB
     Route: 065
     Dates: start: 20141218
  11. ZOLEDRONIC ACID [Concomitant]
     Active Substance: ZOLEDRONIC ACID
     Indication: BREAST CANCER
     Route: 065
     Dates: start: 2010
  12. GEMCITABINE [Concomitant]
     Active Substance: GEMCITABINE\GEMCITABINE HYDROCHLORIDE
     Indication: BREAST CANCER
     Dosage: 6 CYCLES
     Route: 065
     Dates: start: 201007, end: 201011
  13. LAPATINIB [Concomitant]
     Active Substance: LAPATINIB
     Route: 065
     Dates: start: 20141120
  14. ETOPOSIDE. [Concomitant]
     Active Substance: ETOPOSIDE
     Indication: BREAST CANCER
     Route: 065
     Dates: start: 20141120
  15. NEDAPLATIN [Concomitant]
     Active Substance: NEDAPLATIN
     Indication: BREAST CANCER
     Dosage: 6 CYCLES
     Route: 065
     Dates: start: 201007, end: 201011
  16. LAPATINIB [Concomitant]
     Active Substance: LAPATINIB
     Dosage: 13 CYCLES
     Route: 065
     Dates: start: 20141220, end: 20160505
  17. PACLITAXEL. [Concomitant]
     Active Substance: PACLITAXEL
     Dosage: 13 CYCLES; DAY 1,DAY 8, DAY 15
     Route: 041
     Dates: start: 20141220, end: 20160505
  18. PACLITAXEL. [Concomitant]
     Active Substance: PACLITAXEL
     Route: 041
     Dates: start: 201610
  19. NEDAPLATIN [Concomitant]
     Active Substance: NEDAPLATIN
     Dosage: 4 CYCLES
     Route: 065
     Dates: start: 20160620, end: 20160905
  20. LAPATINIB [Concomitant]
     Active Substance: LAPATINIB
     Indication: BREAST CANCER
     Dosage: 14 CYCLES
     Route: 065
     Dates: start: 20130812, end: 20141015
  21. HERCEPTIN [Suspect]
     Active Substance: TRASTUZUMAB
     Indication: BREAST CANCER
     Route: 065
     Dates: start: 201001, end: 201006
  22. HERCEPTIN [Suspect]
     Active Substance: TRASTUZUMAB
     Dosage: 13 CYCLES
     Route: 065
     Dates: start: 20141220, end: 20160505
  23. VINORELBINE [Concomitant]
     Active Substance: VINORELBINE\VINORELBINE TARTRATE
     Dosage: 14 CYCLES
     Route: 065
     Dates: start: 20130812, end: 20141015
  24. LAPATINIB [Concomitant]
     Active Substance: LAPATINIB
     Route: 065
     Dates: start: 201610
  25. HERCEPTIN [Suspect]
     Active Substance: TRASTUZUMAB
     Dosage: 13 CYCLES
     Route: 065
     Dates: start: 20110804, end: 20120530
  26. HERCEPTIN [Suspect]
     Active Substance: TRASTUZUMAB
     Dosage: 14 CYCLES
     Route: 065
     Dates: start: 20130812, end: 20141015
  27. HERCEPTIN [Suspect]
     Active Substance: TRASTUZUMAB
     Dosage: 4 CYCLES
     Route: 065
     Dates: start: 20160620, end: 20160905
  28. CAPECITABINE. [Suspect]
     Active Substance: CAPECITABINE
     Indication: BREAST CANCER
     Dosage: 13 CYCLES
     Route: 065
     Dates: start: 20110804, end: 20120530
  29. PACLITAXEL. [Concomitant]
     Active Substance: PACLITAXEL
     Indication: BREAST CANCER
     Dosage: 6 CYCLES
     Route: 041
  30. TOREMIFENE [Concomitant]
     Active Substance: TOREMIFENE
     Indication: BREAST CANCER
     Route: 048
  31. ANASTROZOLE. [Concomitant]
     Active Substance: ANASTROZOLE
     Indication: BREAST CANCER
     Route: 065
     Dates: start: 201001, end: 201006
  32. ZOLEDRONIC ACID [Concomitant]
     Active Substance: ZOLEDRONIC ACID
     Route: 065
     Dates: start: 2010
  33. FULVESTRANT. [Concomitant]
     Active Substance: FULVESTRANT
     Indication: BREAST CANCER
     Route: 065
     Dates: start: 201301, end: 201303
  34. CARBOPLATIN. [Concomitant]
     Active Substance: CARBOPLATIN
     Indication: BREAST CANCER
     Dosage: 13 CYCLES; ON DAY 1, DAY 8, DAY 15
     Route: 041
     Dates: start: 20141220, end: 20160505

REACTIONS (2)
  - Pain in extremity [Recovering/Resolving]
  - Device related infection [Unknown]

NARRATIVE: CASE EVENT DATE: 201308
